FAERS Safety Report 10922784 (Version 1)
Quarter: 2015Q1

REPORT INFORMATION
  Report Type: Spontaneous
  Country: US (occurrence: US)
  Receive Date: 20150317
  Receipt Date: 20150317
  Transmission Date: 20150721
  Serious: Yes (Other)
  Sender: FDA-Public Use
  Company Number: US-GLAXOSMITHKLINE-US2015GSK034287

PATIENT
  Sex: Female

DRUGS (2)
  1. CARVEDILOL. [Suspect]
     Active Substance: CARVEDILOL
     Indication: CARDIAC DISORDER
     Dosage: UNK UNK, U
  2. COREG [Suspect]
     Active Substance: CARVEDILOL
     Indication: CARDIAC DISORDER
     Dosage: 25 MG, UNK

REACTIONS (7)
  - Insomnia [Unknown]
  - Vomiting [Unknown]
  - Myocardial infarction [Unknown]
  - Chest pain [Unknown]
  - Decreased appetite [Unknown]
  - Cardiac operation [Unknown]
  - Stent placement [Unknown]

NARRATIVE: CASE EVENT DATE: 1990
